FAERS Safety Report 4339197-0 (Version None)
Quarter: 2004Q2

REPORT INFORMATION
  Report Type: 
  Country: None (occurrence: None)
  Receive Date: 20040415
  Receipt Date: 20040209
  Transmission Date: 20050107
  Serious: Yes (Life-Threatening, Other)
  Sender: FDA-Public Use
  Company Number: PHHO2004US02180

PATIENT
  Age: 66 Year
  Sex: Female
  Weight: 55 kg

DRUGS (3)
  1. LOTREL [Suspect]
     Indication: HYPERTENSION
     Dosage: SCREENING PERIOD
  2. DIOVAN [Suspect]
     Indication: HYPERTENSION
     Dosage: 160 MG, QD
     Route: 048
     Dates: start: 20031101
  3. ESIDRIX [Suspect]
     Indication: HYPERTENSION
     Dosage: 3.12 MG, QD
     Dates: start: 20040127, end: 20040204

REACTIONS (9)
  - ANAPHYLACTIC SHOCK [None]
  - ANXIETY [None]
  - CHEST PAIN [None]
  - CHILLS [None]
  - DYSPNOEA [None]
  - HYPOTENSION [None]
  - INTERSTITIAL LUNG DISEASE [None]
  - NAUSEA [None]
  - VOMITING [None]
